FAERS Safety Report 13824988 (Version 2)
Quarter: 2018Q3

REPORT INFORMATION
  Report Type: Spontaneous
  Country: US (occurrence: US)
  Receive Date: 20170802
  Receipt Date: 20180806
  Transmission Date: 20181010
  Serious: No
  Sender: FDA-Public Use
  Company Number: US-ABBVIE-16P-163-1766490-00

PATIENT
  Sex: Male
  Weight: 89.89 kg

DRUGS (1)
  1. NIASPAN ER [Suspect]
     Active Substance: NIACIN
     Indication: PRODUCT USED FOR UNKNOWN INDICATION
     Route: 048

REACTIONS (3)
  - Flushing [Unknown]
  - Drug hypersensitivity [Unknown]
  - Rash [Unknown]
